FAERS Safety Report 23062784 (Version 21)
Quarter: 2025Q2

REPORT INFORMATION
  Report Type: Report from Study
  Country: US (occurrence: US)
  Receive Date: 20231013
  Receipt Date: 20250509
  Transmission Date: 20250716
  Serious: Yes (Hospitalization, Other)
  Sender: TAKEDA
  Company Number: US-TAKEDA-2023TUS097874

PATIENT
  Age: 46 Year
  Sex: Female
  Weight: 69 kg

DRUGS (15)
  1. LANADELUMAB [Suspect]
     Active Substance: LANADELUMAB
     Indication: Immune system disorder
     Dosage: 300 MILLIGRAM, Q2WEEKS
     Dates: start: 202308
  2. LANADELUMAB [Suspect]
     Active Substance: LANADELUMAB
     Indication: Laryngeal oedema
  3. LANADELUMAB [Suspect]
     Active Substance: LANADELUMAB
  4. ADEMPAS [Suspect]
     Active Substance: RIOCIGUAT
     Indication: Product used for unknown indication
     Dosage: 15 MILLIGRAM, TID
  5. TYVASO [Suspect]
     Active Substance: TREPROSTINIL
     Indication: Pulmonary arterial hypertension
  6. TYVASO [Suspect]
     Active Substance: TREPROSTINIL
     Dosage: 32 MICROGRAM, QID
  7. TYVASO [Suspect]
     Active Substance: TREPROSTINIL
     Dosage: UNK UNK, QID
  8. RUCONEST [Suspect]
     Active Substance: CONESTAT ALFA
     Indication: Laryngeal oedema
  9. RUCONEST [Suspect]
     Active Substance: CONESTAT ALFA
     Indication: Peripheral swelling
  10. RUCONEST [Suspect]
     Active Substance: CONESTAT ALFA
     Indication: Joint swelling
  11. HEPARIN LOCK FLUSH [Concomitant]
     Active Substance: HEPARIN SODIUM
  12. NUCALA [Concomitant]
     Active Substance: MEPOLIZUMAB
  13. BENADRYL [Concomitant]
     Active Substance: DIPHENHYDRAMINE HYDROCHLORIDE
  14. PREDNISONE [Concomitant]
     Active Substance: PREDNISONE
  15. PEPCID [Concomitant]
     Active Substance: FAMOTIDINE

REACTIONS (36)
  - Blood pressure decreased [Unknown]
  - Cardiac flutter [Unknown]
  - Dyspnoea exertional [Unknown]
  - Dyspnoea [Not Recovered/Not Resolved]
  - Syncope [Unknown]
  - Loss of personal independence in daily activities [Unknown]
  - Fall [Unknown]
  - Chest pain [Unknown]
  - Urinary tract infection [Unknown]
  - Vascular device infection [Unknown]
  - Mental status changes [Unknown]
  - Pulmonary arterial hypertension [Unknown]
  - Nausea [Unknown]
  - Hereditary angioedema [Not Recovered/Not Resolved]
  - Dizziness [Unknown]
  - Vomiting [Unknown]
  - Weight decreased [Unknown]
  - Road traffic accident [Recovered/Resolved]
  - Asthma [Unknown]
  - Fatigue [Unknown]
  - Illness [Unknown]
  - Respiratory tract infection [Unknown]
  - Chest discomfort [Unknown]
  - Hypotension [Unknown]
  - Cough [Unknown]
  - Infection [Unknown]
  - Weight increased [Unknown]
  - Therapy non-responder [Unknown]
  - Rhinitis [Unknown]
  - Radial nerve palsy [Unknown]
  - Device issue [Unknown]
  - Diarrhoea [Unknown]
  - Upper respiratory tract infection [Unknown]
  - Headache [Unknown]
  - Injection site rash [Unknown]
  - Injection site reaction [Unknown]

NARRATIVE: CASE EVENT DATE: 20231101
